FAERS Safety Report 5334038-7 (Version None)
Quarter: 2007Q2

REPORT INFORMATION
  Report Type: 
  Country: None (occurrence: None)
  Receive Date: 20070524
  Receipt Date: 20070521
  Transmission Date: 20071010
  Serious: Yes (Death)
  Sender: FDA-Public Use
  Company Number: US-BOEHRINGER INGELHEIM PHARMACEUTICALS, INC.-2007-DE-02998GD

PATIENT
  Age: 20 Year
  Sex: Female

DRUGS (12)
  1. PREDNISONE TAB [Suspect]
     Indication: ASTHMA
  2. PREDNISONE TAB [Suspect]
     Dosage: 60 MG, WITH INSTRUCTIONS TO TAPER
  3. PREDNISONE TAB [Suspect]
  4. PREDNISONE TAB [Suspect]
     Dosage: 60 MG, TAPERING TO A FINAL DOSE OF 10 MG EVERY OTHER DAY
     Route: 048
  5. IPRATROPIUM BROMIDE [Suspect]
     Indication: ASTHMA
     Dosage: AROUND-THE-CLOCK INHALATIONAL TREATMENTS (0.5 MG)
     Route: 055
  6. IPRATROPIUM BROMIDE [Suspect]
     Route: 055
  7. ALBUTEROL [Suspect]
     Indication: ASTHMA
     Dosage: AROUND-THE-CLOCK INHALATIONAL TREATMENTS (2.5 MG)
     Route: 055
  8. ALBUTEROL [Suspect]
     Route: 055
  9. ALBUTEROL [Suspect]
     Dosage: 8 PUFFS
     Route: 055
  10. SALMETEROL XINAFOATE [Suspect]
     Indication: ASTHMA
     Dosage: 2 PUFFS
     Route: 055
  11. FLUTICASONE PROPIONATE [Suspect]
     Indication: ASTHMA
     Route: 055
  12. AZITHROMYCIN [Concomitant]

REACTIONS (6)
  - ASTHMA [None]
  - CARDIO-RESPIRATORY ARREST [None]
  - CUSHINGOID [None]
  - DRUG DEPENDENCE [None]
  - DRUG INEFFECTIVE [None]
  - STATUS ASTHMATICUS [None]
